FAERS Safety Report 9916104 (Version 1)
Quarter: 2014Q1

REPORT INFORMATION
  Report Type: Spontaneous
  Country: FR (occurrence: FR)
  Receive Date: 20140221
  Receipt Date: 20140221
  Transmission Date: 20141002
  Serious: Yes (Life-Threatening, Hospitalization, Other)
  Sender: FDA-Public Use
  Company Number: FR-BRISTOL-MYERS SQUIBB COMPANY-20206173

PATIENT
  Age: 62 Year
  Sex: Male

DRUGS (6)
  1. ELIQUIS [Suspect]
     Indication: THROMBOSIS PROPHYLAXIS
     Route: 048
     Dates: start: 20140114, end: 20140119
  2. LOVENOX [Suspect]
     Indication: THROMBOSIS PROPHYLAXIS
     Route: 058
     Dates: start: 20140120
  3. ATACAND [Concomitant]
     Route: 048
     Dates: start: 20100101
  4. BACLOFEN [Concomitant]
  5. CITALOPRAM [Concomitant]
     Route: 048
  6. TRAMADOL [Concomitant]
     Dosage: 1DF: TABS

REACTIONS (1)
  - Pulmonary embolism [Recovering/Resolving]
